FAERS Safety Report 4687233-4 (Version None)
Quarter: 2005Q2

REPORT INFORMATION
  Report Type: 
  Country: None (occurrence: None)
  Receive Date: 20050606
  Receipt Date: 20050527
  Transmission Date: 20051028
  Serious: Yes (Hospitalization, Disabling)
  Sender: FDA-Public Use
  Company Number: USA-2005-0020433

PATIENT
  Age: 1 Year
  Sex: Male

DRUGS (1)
  1. CEFDITOREN PIVOXIL (SIMILAR TO NDA 21-222)(CEFDITOREN PIVOXIL) UNKNOWN [Suspect]
     Indication: OTITIS MEDIA
     Dosage: ORAL
     Route: 048

REACTIONS (4)
  - CARNITINE DECREASED [None]
  - CONVULSION [None]
  - HYPOGLYCAEMIA [None]
  - METABOLIC ACIDOSIS [None]
